FAERS Safety Report 4457637-3 (Version None)
Quarter: 2004Q3

REPORT INFORMATION
  Report Type: 
  Country: None (occurrence: None)
  Receive Date: 20040922
  Receipt Date: 20040902
  Transmission Date: 20050211
  Serious: Yes (Hospitalization, Other)
  Sender: FDA-Public Use
  Company Number: US_020180887

PATIENT
  Sex: Female
  Weight: 64 kg

DRUGS (8)
  1. HUMALOG [Suspect]
     Indication: DIABETES MELLITUS
  2. HUMULIN 70/30 [Suspect]
  3. LANTUS [Concomitant]
  4. GLUCOTROL [Concomitant]
  5. ACTOS [Concomitant]
  6. METOPROLOL [Concomitant]
  7. PRINIVIL [Concomitant]
  8. NORVASC [Concomitant]

REACTIONS (13)
  - BLOOD CHOLESTEROL ABNORMAL [None]
  - BLOOD GLUCOSE DECREASED [None]
  - BLOOD GLUCOSE INCREASED [None]
  - CARDIAC FAILURE CONGESTIVE [None]
  - COMA [None]
  - HEART RATE ABNORMAL [None]
  - MACULAR DEGENERATION [None]
  - MALAISE [None]
  - MYOCARDIAL INFARCTION [None]
  - PANCREATIC DISORDER [None]
  - RESPIRATORY DISORDER [None]
  - TREATMENT NONCOMPLIANCE [None]
  - VOMITING [None]
